FAERS Safety Report 6094646-5 (Version None)
Quarter: 2009Q1

REPORT INFORMATION
  Report Type: 
  Country: None (occurrence: None)
  Receive Date: 20090224
  Receipt Date: 20090213
  Transmission Date: 20090719
  Serious: Yes (Hospitalization)
  Sender: FDA-Public Use
  Company Number: 100#03#2009-00665

PATIENT
  Sex: Female

DRUGS (3)
  1. GEMCITABINE [Suspect]
     Indication: DRUG EXPOSURE DURING PREGNANCY
     Dosage: TRANSPLACENTAL
     Route: 064
  2. CARBOPLATIN [Suspect]
     Indication: DRUG EXPOSURE DURING PREGNANCY
     Dosage: TRANSPLACENTAL
     Route: 064
  3. STEROIDS (UNKNOWN) [Suspect]
     Indication: DRUG EXPOSURE DURING PREGNANCY
     Dosage: TRANSPLACENTAL
     Route: 064

REACTIONS (8)
  - CAESAREAN SECTION [None]
  - CONGENITAL ANAEMIA [None]
  - INCREASED BRONCHIAL SECRETION [None]
  - LUNG DISORDER [None]
  - MATERNAL DRUGS AFFECTING FOETUS [None]
  - NEUTROPHILIA [None]
  - PREMATURE BABY [None]
  - STAPHYLOCOCCAL SEPSIS [None]
